FAERS Safety Report 10186964 (Version 1)
Quarter: 2014Q2

REPORT INFORMATION
  Report Type: Report from Study
  Country: US (occurrence: US)
  Receive Date: 20140522
  Receipt Date: 20140522
  Transmission Date: 20141212
  Serious: Yes (Hospitalization)
  Sender: FDA-Public Use
  Company Number: US-BIOGENIDEC-2014BI047084

PATIENT
  Sex: Male

DRUGS (2)
  1. AVONEX [Suspect]
     Indication: MULTIPLE SCLEROSIS
     Route: 030
     Dates: start: 19980101
  2. AVONEX [Suspect]
     Indication: MULTIPLE SCLEROSIS
     Route: 030
     Dates: end: 20120427

REACTIONS (5)
  - Spinal cord disorder [Not Recovered/Not Resolved]
  - Surgical failure [Unknown]
  - Blindness [Not Recovered/Not Resolved]
  - Back pain [Recovered/Resolved]
  - Influenza like illness [Recovered/Resolved]
